FAERS Safety Report 4785285-4 (Version None)
Quarter: 2005Q3

REPORT INFORMATION
  Report Type: 
  Country: None (occurrence: None)
  Receive Date: 20050929
  Receipt Date: 20050914
  Transmission Date: 20060218
  Serious: Yes (Life-Threatening, Hospitalization)
  Sender: FDA-Public Use
  Company Number: HU-2005-018676

PATIENT
  Age: 62 Year
  Sex: Female

DRUGS (6)
  1. ULTRAVIST 370 [Suspect]
     Indication: COMPUTERISED TOMOGRAM ABDOMEN
     Dosage: 80 ML, 1 DOSE, INTRAVENOUS
     Route: 042
     Dates: start: 20050907, end: 20050907
  2. GASTROGRAFIN(SODIUM AMIDOTRIZOATE, MEGLUMINE AMIDOTRIZOATE) [Suspect]
     Indication: COMPUTERISED TOMOGRAM ABDOMEN
     Dosage: ORAL
     Route: 048
     Dates: start: 20050907, end: 20050907
  3. BETALOC [Concomitant]
  4. TENSIOMIN(CAPTOPRIL) [Concomitant]
  5. XANAX [Concomitant]
  6. QUAMATEL (FAMOTIDINE) [Concomitant]

REACTIONS (6)
  - ANAPHYLACTIC SHOCK [None]
  - CARDIAC ARREST [None]
  - CONFUSIONAL STATE [None]
  - HYPERSENSITIVITY [None]
  - MENTAL DISORDER [None]
  - RESPIRATORY FAILURE [None]
